FAERS Safety Report 7397965-5 (Version None)
Quarter: 2011Q2

REPORT INFORMATION
  Report Type: 
  Country: None (occurrence: None)
  Receive Date: 20110406
  Receipt Date: 20110401
  Transmission Date: 20111010
  Serious: Yes (Other)
  Sender: FDA-Public Use
  Company Number: HU-PFIZER INC-2010121478

PATIENT
  Age: 59 Year
  Sex: Female
  Weight: 42 kg

DRUGS (10)
  1. CARDURA [Suspect]
     Indication: HYPERTENSION
     Dosage: 2 MG, 1X/DAY
     Route: 048
     Dates: start: 20100909, end: 20100901
  2. TENAXUM [Concomitant]
     Dosage: UNK
     Route: 048
  3. FORMOTEROL [Concomitant]
     Dosage: UNK
     Route: 055
  4. ASPIRIN [Concomitant]
     Dosage: UNK
     Route: 048
  5. SERETIDE DISKUS [Concomitant]
     Dosage: UNK
     Route: 055
  6. SPIRIVA [Concomitant]
     Dosage: UNK
     Route: 055
  7. NASONEX [Concomitant]
     Dosage: UNK
     Route: 045
  8. LOSARTAN [Concomitant]
     Dosage: UNK
     Route: 048
  9. BISOPROLOL [Concomitant]
     Dosage: UNK
     Route: 048
  10. SIMVASTATIN [Concomitant]
     Dosage: UNK
     Route: 048

REACTIONS (2)
  - RESPIRATORY TRACT INFECTION [None]
  - MEDICATION ERROR [None]
